FAERS Safety Report 19352533 (Version 1)
Quarter: 2021Q2

REPORT INFORMATION
  Report Type: Spontaneous
  Country: US (occurrence: US)
  Receive Date: 20210531
  Receipt Date: 20210531
  Transmission Date: 20210717
  Serious: No
  Sender: FDA-Public Use
  Company Number: US-009507513-2105USA006179

PATIENT
  Age: 75 Year
  Sex: Female

DRUGS (7)
  1. BELSOMRA [Suspect]
     Active Substance: SUVOREXANT
     Indication: INSOMNIA
     Dosage: 10 MILLIGRAM, EACH NIGHT
     Route: 048
     Dates: start: 202103, end: 2021
  2. BELSOMRA [Suspect]
     Active Substance: SUVOREXANT
     Indication: INSOMNIA
     Dosage: 15 MILLIGRAM, EACH NIGHT
     Route: 048
     Dates: start: 2021, end: 2021
  3. MAGNESIUM [Concomitant]
     Active Substance: MAGNESIUM
  4. BELSOMRA [Suspect]
     Active Substance: SUVOREXANT
     Dosage: 1. 5 TABLETS EACH NIGHT FOR A DOSE GREATER THAN 20MG
     Route: 048
  5. OXYBUTIN [Concomitant]
     Active Substance: OXYBUTYNIN
  6. BELSOMRA [Suspect]
     Active Substance: SUVOREXANT
     Dosage: 20 MILLIGRAM (2 TABLETS) EACH NIGHT
     Route: 048
     Dates: start: 2021, end: 2021
  7. PRINIVIL [Concomitant]
     Active Substance: LISINOPRIL

REACTIONS (8)
  - Micturition disorder [Not Recovered/Not Resolved]
  - Decreased appetite [Not Recovered/Not Resolved]
  - Wrong technique in product usage process [Unknown]
  - Intentional product misuse [Unknown]
  - Drug ineffective [Not Recovered/Not Resolved]
  - Abdominal pain upper [Not Recovered/Not Resolved]
  - Constipation [Not Recovered/Not Resolved]
  - Drug ineffective [Not Recovered/Not Resolved]

NARRATIVE: CASE EVENT DATE: 2021
